FAERS Safety Report 10263014 (Version 1)
Quarter: 2014Q2

REPORT INFORMATION
  Report Type: Report from Study
  Country: US (occurrence: US)
  Receive Date: 20140626
  Receipt Date: 20140626
  Transmission Date: 20141212
  Serious: Yes (Death)
  Sender: FDA-Public Use
  Company Number: US-MYLANLABS-2013S1026298

PATIENT
  Age: 26 Year
  Sex: Male
  Weight: 90.72 kg

DRUGS (3)
  1. CLOZAPINE TABLETS [Suspect]
     Indication: PSYCHOTIC DISORDER
     Route: 048
     Dates: start: 2011, end: 2013
  2. PROZAC [Concomitant]
     Route: 048
  3. LITHIUM [Concomitant]
     Route: 048

REACTIONS (1)
  - Completed suicide [Fatal]
